FAERS Safety Report 7341316-9 (Version None)
Quarter: 2011Q1

REPORT INFORMATION
  Report Type: 
  Country: None (occurrence: None)
  Receive Date: 20110309
  Receipt Date: 20110225
  Transmission Date: 20110831
  Serious: Yes (Other)
  Sender: FDA-Public Use
  Company Number: US-JNJFOC-20110301498

PATIENT
  Sex: Male

DRUGS (2)
  1. VISINE-A [Suspect]
     Indication: EYE IRRITATION
     Route: 047
  2. VISINE-A [Suspect]
     Indication: LACRIMATION INCREASED
     Route: 047

REACTIONS (1)
  - VISUAL IMPAIRMENT [None]
